FAERS Safety Report 5768686-7 (Version None)
Quarter: 2008Q2

REPORT INFORMATION
  Report Type: 
  Country: None (occurrence: None)
  Receive Date: 20080612
  Receipt Date: 20080517
  Transmission Date: 20081010
  Serious: No
  Sender: FDA-Public Use
  Company Number: US-BOEHRINGER INGELHEIM GMBH, GERMANY-2008-BP-07760BP

PATIENT
  Age: 61 Year
  Sex: Male

DRUGS (3)
  1. FLOMAX [Suspect]
     Indication: BENIGN PROSTATIC HYPERPLASIA
     Dates: start: 20070901, end: 20080517
  2. AVODART [Concomitant]
     Dates: start: 20071101, end: 20080517
  3. ALIVE [Concomitant]
     Indication: VITAMIN SUPPLEMENTATION
     Dates: start: 20080201, end: 20080516

REACTIONS (4)
  - CONDITION AGGRAVATED [None]
  - EYE PAIN [None]
  - HERPES ZOSTER [None]
  - PAIN OF SKIN [None]
